FAERS Safety Report 6309381-5 (Version None)
Quarter: 2009Q3

REPORT INFORMATION
  Report Type: 
  Country: None (occurrence: None)
  Receive Date: 20090814
  Receipt Date: 20090810
  Transmission Date: 20100115
  Serious: Yes (Life-Threatening, Hospitalization)
  Sender: FDA-Public Use
  Company Number: US-ROCHE-647228

PATIENT
  Sex: Male
  Weight: 94.3 kg

DRUGS (29)
  1. VALCYTE [Suspect]
     Indication: DRUG USE FOR UNKNOWN INDICATION
     Route: 048
  2. BACTRIM [Suspect]
     Indication: URINARY TRACT INFECTION
     Route: 048
  3. ALEFACEPT [Suspect]
     Indication: RENAL TRANSPLANT
     Dosage: ROUTE: INTRAVENOUS (NOS)
     Route: 050
     Dates: start: 20090709, end: 20090709
  4. ALEFACEPT [Suspect]
     Dosage: ROUTE: INTRAVENOUS (NOS)
     Route: 050
     Dates: start: 20090712, end: 20090712
  5. ALEFACEPT [Suspect]
     Dosage: ROUTE: SUBCUTANEOUS
     Route: 050
     Dates: start: 20090716, end: 20090721
  6. PROGRAF [Suspect]
     Indication: RENAL TRANSPLANT
     Route: 048
     Dates: start: 20090710, end: 20090719
  7. PROGRAF [Suspect]
     Route: 048
  8. PLAVIX [Suspect]
     Indication: DRUG USE FOR UNKNOWN INDICATION
     Route: 048
  9. SYNTHROID [Suspect]
     Indication: DRUG USE FOR UNKNOWN INDICATION
     Route: 048
  10. HEPARIN [Suspect]
     Indication: DRUG USE FOR UNKNOWN INDICATION
     Route: 065
  11. ASPIRIN [Suspect]
     Indication: DRUG USE FOR UNKNOWN INDICATION
     Route: 065
  12. ASPIRIN [Suspect]
     Route: 065
  13. PREDNISONE [Concomitant]
     Dates: start: 20090710
  14. AMBIEN [Concomitant]
  15. PRILOSEC [Concomitant]
  16. LANTUS [Concomitant]
  17. DILTIAZEM [Concomitant]
  18. NEPHROCAPS [Concomitant]
  19. RENAGEL [Concomitant]
  20. NOVOLOG [Concomitant]
  21. DOPAMINE HCL [Concomitant]
  22. METOPROLOL [Concomitant]
  23. NORVASC [Concomitant]
  24. CALCIUM CARBONATE [Concomitant]
  25. FERROUS GLUCONATE [Concomitant]
  26. LABETALOL HCL [Concomitant]
  27. ROSUVASTATIN CALCIUM [Concomitant]
  28. AVAPRO [Concomitant]
  29. DILAUDID [Concomitant]

REACTIONS (2)
  - BLOOD URINE PRESENT [None]
  - THROMBOCYTOPENIA [None]
